FAERS Safety Report 8406457 (Version 4)
Quarter: 2012Q4

REPORT INFORMATION
  Report Type: 
  Country: US (occurrence: US)
  Receive Date: 20120215
  Receipt Date: 20120925
  Transmission Date: 20130627
  Serious: Yes (Hospitalization)
  Sender: FDA-Public Use
  Company Number: US-BAYER-2012-014277

PATIENT
  Age: 27 Year
  Sex: Female
  Weight: 93.42 kg

DRUGS (4)
  1. YAZ [Suspect]
     Indication: CONTRACEPTION
     Dosage: UNK
     Dates: start: 2008, end: 20110214
  2. DARVOCET-N [Concomitant]
     Dosage: UNK
     Route: 048
     Dates: start: 20101109
  3. ZOFRAN [Concomitant]
     Dosage: 4 mg, UNK
     Route: 048
     Dates: start: 20101109
  4. PRO-AIR [Concomitant]
     Dosage: UNK, as needed

REACTIONS (5)
  - Pulmonary embolism [None]
  - Deep vein thrombosis [Recovered/Resolved]
  - Pulmonary embolism [None]
  - Thrombosis [None]
  - Dyspnoea [None]
